FAERS Safety Report 8870113 (Version 1)
Quarter: 2012Q4

REPORT INFORMATION
  Report Type: 
  Country: US (occurrence: None)
  Receive Date: 20121025
  Receipt Date: 20121025
  Transmission Date: 20130627
  Serious: Yes (Hospitalization)
  Sender: FDA-Public Use
  Company Number: None

PATIENT
  Sex: Male
  Weight: 90 kg

DRUGS (1)
  1. CETUXIMAB [Suspect]
     Dosage: 2350 mg total dose   1st dose was 400 mg/m2, all other doses were 250 mg/m2.

REACTIONS (5)
  - Nausea [None]
  - Vomiting [None]
  - Dysphagia [None]
  - Hypophagia [None]
  - Odynophagia [None]
